FAERS Safety Report 21716284 (Version 1)
Quarter: 2022Q4

REPORT INFORMATION
  Report Type: Spontaneous
  Country: None (occurrence: US)
  Receive Date: 20221212
  Receipt Date: 20221212
  Transmission Date: 20230113
  Serious: Yes (Other)
  Sender: FDA-Public Use
  Company Number: US-STI Pharma LLC-2135780

PATIENT
  Age: 37 Year
  Sex: Male

DRUGS (1)
  1. ETHAMBUTOL HYDROCHLORIDE [Suspect]
     Active Substance: ETHAMBUTOL HYDROCHLORIDE

REACTIONS (3)
  - Drainage [Unknown]
  - Post procedural swelling [Unknown]
  - Diagnostic aspiration [Unknown]
